FAERS Safety Report 8840827 (Version 3)
Quarter: 2013Q4

REPORT INFORMATION
  Report Type: Spontaneous
  Country: ES (occurrence: ES)
  Receive Date: 20121015
  Receipt Date: 20131204
  Transmission Date: 20140711
  Serious: Yes (Hospitalization)
  Sender: FDA-Public Use
  Company Number: ES-ROCHE-1141337

PATIENT
  Age: 63 Year
  Sex: Male

DRUGS (3)
  1. PEG-INTERFERON ALFA 2A [Suspect]
     Indication: CHRONIC HEPATITIS C
     Route: 058
  2. RIBAVIRIN [Suspect]
     Indication: CHRONIC HEPATITIS C
     Route: 048
  3. RITUXIMAB [Suspect]
     Indication: ACQUIRED HAEMOPHILIA
     Dosage: DAYS 34 TO 62
     Route: 042

REACTIONS (7)
  - Acquired haemophilia with anti FVIII, XI, or XIII [Recovered/Resolved]
  - Haematoma [Recovered/Resolved]
  - Coagulopathy [Recovered/Resolved]
  - Cellulitis [Unknown]
  - Neutropenia [Unknown]
  - Eczema [Recovered/Resolved]
  - Off label use [Unknown]
